FAERS Safety Report 6773558-5 (Version None)
Quarter: 2010Q2

REPORT INFORMATION
  Report Type: 
  Country: None (occurrence: None)
  Receive Date: 20100616
  Receipt Date: 20100609
  Transmission Date: 20101027
  Serious: Yes (Other)
  Sender: FDA-Public Use
  Company Number: US-AMGEN-QUU417454

PATIENT
  Sex: Male

DRUGS (1)
  1. ARANESP [Suspect]
     Indication: RENAL FAILURE CHRONIC
     Route: 058
     Dates: start: 20080601

REACTIONS (10)
  - AMNESIA [None]
  - BACK PAIN [None]
  - BLOOD IRON DECREASED [None]
  - FATIGUE [None]
  - FLUID RETENTION [None]
  - GINGIVAL BLEEDING [None]
  - HYPERGLYCAEMIA [None]
  - MOUTH HAEMORRHAGE [None]
  - THERAPEUTIC RESPONSE DECREASED [None]
  - WEIGHT INCREASED [None]
